FAERS Safety Report 11417788 (Version 1)
Quarter: 2015Q3

REPORT INFORMATION
  Report Type: Report from Study
  Country: US (occurrence: US)
  Receive Date: 20150825
  Receipt Date: 20150825
  Transmission Date: 20151125
  Serious: Yes (Other)
  Sender: FDA-Public Use
  Company Number: GXBR2015US001929

PATIENT
  Age: 50 Year
  Sex: Female
  Weight: 93 kg

DRUGS (4)
  1. EPINEPHRINE. [Concomitant]
     Active Substance: EPINEPHRINE
     Indication: ANAPHYLACTIC REACTION
     Dosage: UNK DF, UNK
     Route: 065
     Dates: start: 20150616
  2. BENADRYL [Suspect]
     Active Substance: DIPHENHYDRAMINE HYDROCHLORIDE
     Indication: ANAPHYLACTIC REACTION
     Dosage: UNK MG, UNK
     Route: 065
     Dates: start: 20150616
  3. LORAZEPAM ACTAVIS 0.5MG [Suspect]
     Active Substance: LORAZEPAM
     Indication: ANAPHYLACTIC REACTION
     Dosage: UNK MG, UNK
     Route: 065
     Dates: start: 20150616
  4. HYDROCORTISONE. [Concomitant]
     Active Substance: HYDROCORTISONE
     Indication: ANAPHYLACTIC REACTION
     Dosage: UNK MG, UNK
     Route: 065
     Dates: start: 20150616

REACTIONS (1)
  - Hypotension [Recovered/Resolved]

NARRATIVE: CASE EVENT DATE: 20150616
